FAERS Safety Report 7233256-0 (Version None)
Quarter: 2011Q1

REPORT INFORMATION
  Report Type: 
  Country: None (occurrence: None)
  Receive Date: 20110119
  Receipt Date: 20110117
  Transmission Date: 20110831
  Serious: Yes (Hospitalization)
  Sender: FDA-Public Use
  Company Number: B0694114A

PATIENT
  Age: 78 Year
  Sex: Female

DRUGS (1)
  1. MALARONE [Suspect]
     Indication: MALARIA PROPHYLAXIS
     Route: 048
     Dates: end: 20110111

REACTIONS (3)
  - HALLUCINATION, AUDITORY [None]
  - CONVULSION [None]
  - CONFUSIONAL STATE [None]
